FAERS Safety Report 26158274 (Version 1)
Quarter: 2025Q4

REPORT INFORMATION
  Report Type: Spontaneous
  Country: US (occurrence: US)
  Receive Date: 20251215
  Receipt Date: 20251215
  Transmission Date: 20260117
  Serious: Yes (Hospitalization)
  Sender: MYLAN
  Company Number: US-MYLANLABS-2025M1106001

PATIENT
  Age: 64 Year
  Sex: Male

DRUGS (20)
  1. SPIRONOLACTONE [Suspect]
     Active Substance: SPIRONOLACTONE
     Indication: Hypertension
     Dosage: 12.5 MILLIGRAM, QD
  2. SPIRONOLACTONE [Suspect]
     Active Substance: SPIRONOLACTONE
     Dosage: 12.5 MILLIGRAM, QD
     Route: 065
  3. SPIRONOLACTONE [Suspect]
     Active Substance: SPIRONOLACTONE
     Dosage: 12.5 MILLIGRAM, QD
     Route: 065
  4. SPIRONOLACTONE [Suspect]
     Active Substance: SPIRONOLACTONE
     Dosage: 12.5 MILLIGRAM, QD
  5. LOSARTAN [Suspect]
     Active Substance: LOSARTAN
     Indication: Hypertension
     Dosage: 12.5 MILLIGRAM, QD
  6. LOSARTAN [Suspect]
     Active Substance: LOSARTAN
     Dosage: 12.5 MILLIGRAM, QD
     Route: 065
  7. LOSARTAN [Suspect]
     Active Substance: LOSARTAN
     Dosage: 12.5 MILLIGRAM, QD
     Route: 065
  8. LOSARTAN [Suspect]
     Active Substance: LOSARTAN
     Dosage: 12.5 MILLIGRAM, QD
  9. TORSEMIDE [Suspect]
     Active Substance: TORSEMIDE
     Indication: Hypertension
     Dosage: 40 MILLIGRAM, BID
  10. TORSEMIDE [Suspect]
     Active Substance: TORSEMIDE
     Dosage: 40 MILLIGRAM, BID
  11. TORSEMIDE [Suspect]
     Active Substance: TORSEMIDE
     Dosage: 40 MILLIGRAM, BID
     Route: 065
  12. TORSEMIDE [Suspect]
     Active Substance: TORSEMIDE
     Dosage: 40 MILLIGRAM, BID
     Route: 065
  13. TORSEMIDE [Suspect]
     Active Substance: TORSEMIDE
     Dosage: UNK, REINITIATED WITH REDUCED DOSAGE
  14. TORSEMIDE [Suspect]
     Active Substance: TORSEMIDE
     Dosage: UNK, REINITIATED WITH REDUCED DOSAGE
  15. TORSEMIDE [Suspect]
     Active Substance: TORSEMIDE
     Dosage: UNK, REINITIATED WITH REDUCED DOSAGE
     Route: 065
  16. TORSEMIDE [Suspect]
     Active Substance: TORSEMIDE
     Dosage: UNK, REINITIATED WITH REDUCED DOSAGE
     Route: 065
  17. METOPROLOL SUCCINATE [Concomitant]
     Active Substance: METOPROLOL SUCCINATE
     Indication: Hypertension
     Dosage: 50 MILLIGRAM, BID
  18. METOPROLOL SUCCINATE [Concomitant]
     Active Substance: METOPROLOL SUCCINATE
     Dosage: 50 MILLIGRAM, BID
     Route: 065
  19. METOPROLOL SUCCINATE [Concomitant]
     Active Substance: METOPROLOL SUCCINATE
     Dosage: 50 MILLIGRAM, BID
     Route: 065
  20. METOPROLOL SUCCINATE [Concomitant]
     Active Substance: METOPROLOL SUCCINATE
     Dosage: 50 MILLIGRAM, BID

REACTIONS (2)
  - Crystal nephropathy [Recovered/Resolved]
  - Acute kidney injury [Recovered/Resolved]
